FAERS Safety Report 5882405-5 (Version None)
Quarter: 2008Q3

REPORT INFORMATION
  Report Type: 
  Country: None (occurrence: None)
  Receive Date: 20080913
  Receipt Date: 20080805
  Transmission Date: 20090109
  Serious: No
  Sender: FDA-Public Use
  Company Number: US-ABBOTT-08P-163-0468586-00

PATIENT
  Sex: Female
  Weight: 59.02 kg

DRUGS (1)
  1. HUMIRA [Suspect]
     Indication: CROHN'S DISEASE
     Dosage: 160 MG, DAY 1
     Dates: start: 20080725

REACTIONS (5)
  - CHEST DISCOMFORT [None]
  - FATIGUE [None]
  - HEADACHE [None]
  - HYPERAESTHESIA [None]
  - PRURITUS [None]
